FAERS Safety Report 10252039 (Version 1)
Quarter: 2014Q2

REPORT INFORMATION
  Report Type: Report from Study
  Country: MX (occurrence: MX)
  Receive Date: 20140623
  Receipt Date: 20140623
  Transmission Date: 20141212
  Serious: Yes (Hospitalization, Other)
  Sender: FDA-Public Use
  Company Number: PHHY2014MX074315

PATIENT
  Age: 58 Year
  Sex: Female

DRUGS (14)
  1. ONBREZ [Suspect]
     Indication: ASTHMA
     Dosage: 300 UG, DAILY
     Route: 006
     Dates: start: 201201
  2. ONBREZ [Suspect]
     Indication: OFF LABEL USE
  3. SERETIDE [Concomitant]
     Indication: ASTHMA
     Dosage: UNK
  4. MONTELUKAST [Concomitant]
     Indication: ASTHMA
     Dosage: UNK
  5. METFORMIN [Concomitant]
     Indication: BLOOD GLUCOSE ABNORMAL
     Dosage: UNK
  6. CELEBREX [Concomitant]
     Indication: ARTHRALGIA
     Dosage: UNK
  7. HYDRALAZIN [Concomitant]
     Indication: HYPERTENSION
     Dosage: UNK
  8. HYDRALAZIN [Concomitant]
     Indication: POLYURIA
  9. ISOSORBIDE [Concomitant]
     Indication: HYPERTENSION
     Dosage: UNK
  10. NIFEDIPINO [Concomitant]
     Indication: HYPERTENSION
     Dosage: UNK
  11. ESPIRONOLACTONA [Concomitant]
     Indication: POLYURIA
     Dosage: UNK
  12. FUROSEMIDE [Concomitant]
     Indication: POLYURIA
     Dosage: UNK
  13. LOSARTAN [Concomitant]
     Indication: HYPERTENSION
     Dosage: UNK
  14. OMEPRAZOLE [Concomitant]
     Indication: PROPHYLAXIS
     Dosage: UNK

REACTIONS (8)
  - Pulmonary oedema [Unknown]
  - Choking [Unknown]
  - Fluid retention [Unknown]
  - Asphyxia [Unknown]
  - Cardiac murmur [Unknown]
  - Cardiac hypertrophy [Unknown]
  - Anaemia [Unknown]
  - Incorrect route of drug administration [Not Recovered/Not Resolved]
